FAERS Safety Report 7581401-X (Version None)
Quarter: 2011Q2

REPORT INFORMATION
  Report Type: 
  Country: None (occurrence: None)
  Receive Date: 20110629
  Receipt Date: 20110615
  Transmission Date: 20111010
  Serious: Yes (Hospitalization)
  Sender: FDA-Public Use
  Company Number: PHHY2011ES52424

PATIENT
  Age: 72 Year
  Sex: Female

DRUGS (10)
  1. DOXAZOSIN MESYLATE [Concomitant]
     Indication: HYPERTENSION
     Dosage: 4 MG, DAILY
     Route: 048
     Dates: start: 20100101
  2. FUROSEMIDE [Concomitant]
     Indication: CARDIAC FAILURE CONGESTIVE
     Dosage: 30 MG, DAILY
     Route: 048
     Dates: start: 20090101
  3. MAGNOGENE [Concomitant]
     Dosage: UNK
     Route: 048
     Dates: start: 20080501
  4. EXFORGE [Suspect]
     Indication: HYPERTENSION
     Dosage: 1 DF (VALSARTAN 160 MG/ AMLODIPINE 10 MG)
     Route: 048
     Dates: start: 20100101, end: 20110104
  5. COROPRES [Concomitant]
     Indication: HYPERTENSION
     Dosage: 6.25 MG, DAILY
     Route: 048
     Dates: start: 20030101
  6. OXYCONTIN [Concomitant]
     Indication: PAIN
     Dosage: 15 MG, QD
     Route: 048
     Dates: start: 20100101
  7. ALDACTONE [Interacting]
     Indication: CARDIAC FAILURE CONGESTIVE
     Dosage: 25 MG, QD
     Route: 048
     Dates: start: 20101101, end: 20110104
  8. RISEDRONIC ACID [Concomitant]
     Indication: OSTEOPOROSIS
     Dosage: 35 MG, ONCE A WEEK
     Dates: start: 20080101
  9. NOVOMIX [Concomitant]
     Indication: DIABETES MELLITUS
     Dosage: 17 IU, DAILY
     Route: 058
     Dates: start: 20100101
  10. TICLID [Concomitant]
     Indication: ISCHAEMIC CARDIOMYOPATHY
     Dosage: 250 MG, DAILY
     Route: 048
     Dates: start: 20030101

REACTIONS (6)
  - HYPERKALAEMIA [None]
  - MALAISE [None]
  - TREMOR [None]
  - SOMNOLENCE [None]
  - DISORIENTATION [None]
  - DRUG INTERACTION [None]
